FAERS Safety Report 10265921 (Version 2)
Quarter: 2014Q2

REPORT INFORMATION
  Report Type: Report from Study
  Country: MX (occurrence: MX)
  Receive Date: 20140627
  Receipt Date: 20140627
  Transmission Date: 20141212
  Serious: Yes (Other)
  Sender: FDA-Public Use
  Company Number: PHHY2013MX091411

PATIENT
  Age: 81 Year
  Sex: Male

DRUGS (10)
  1. GALVUS [Suspect]
     Indication: DIABETES MELLITUS
     Dosage: 50 MG, DAILY
     Route: 048
     Dates: start: 201206
  2. GALVUS [Suspect]
     Dosage: 150 MG, DAILY
     Route: 048
     Dates: start: 201306
  3. CO-DIOVAN [Suspect]
     Indication: HYPERTENSION
     Dosage: 1 DF, BID (1 IN MORNING AND 1 IN EVENING)
     Route: 048
  4. ISOSORBIDE [Concomitant]
     Indication: TACHYCARDIA
     Dosage: 2 UKN, DAILY
  5. GLUCOPHAGE [Concomitant]
     Indication: DIABETES MELLITUS
     Dosage: UNK UKN, UNK
  6. CILOSTAZOL [Concomitant]
     Indication: CARDIOVASCULAR DISORDER
     Dosage: 2 DF, DAILY
  7. CLOPIDOGREL [Concomitant]
     Indication: CARDIOVASCULAR DISORDER
     Dosage: 1 DF, DAILY
     Dates: start: 201206
  8. FUROSEMIDE [Concomitant]
     Indication: FLUID RETENTION
     Dosage: 1 DF, DAILY
     Dates: start: 201206
  9. ACETYLSALICYLIC ACID [Concomitant]
     Indication: BLOOD DISORDER
     Dosage: 1 DF, DAILY
     Dates: start: 201403
  10. PROPANOLOL [Concomitant]
     Indication: TACHYCARDIA
     Dosage: 1 DF, DAILY

REACTIONS (4)
  - Embolism [Unknown]
  - Monoplegia [Not Recovered/Not Resolved]
  - Fluid retention [Not Recovered/Not Resolved]
  - Depression [Not Recovered/Not Resolved]
